FAERS Safety Report 10077686 (Version 2)
Quarter: 2014Q2

REPORT INFORMATION
  Report Type: Spontaneous
  Country: DK (occurrence: DK)
  Receive Date: 20140414
  Receipt Date: 20140527
  Transmission Date: 20141212
  Serious: Yes (Other)
  Sender: FDA-Public Use
  Company Number: PHHY2014DK044341

PATIENT
  Age: 30 Year
  Sex: Male

DRUGS (3)
  1. RITALIN [Suspect]
     Indication: ATTENTION DEFICIT/HYPERACTIVITY DISORDER
     Dosage: 20 MG, BID
     Route: 048
     Dates: start: 201108
  2. RITALIN [Suspect]
     Dosage: 60 MG, DAILY
     Route: 048
     Dates: start: 201112, end: 201201
  3. TRUXAL [Concomitant]
     Dosage: 1 TO 2 DF AT NIGHT
     Route: 048

REACTIONS (3)
  - Suicidal ideation [Unknown]
  - Depression [Unknown]
  - Sluggishness [Unknown]
